FAERS Safety Report 9417078 (Version 1)
Quarter: 2013Q3

REPORT INFORMATION
  Report Type: Spontaneous
  Country: PE (occurrence: PE)
  Receive Date: 20130724
  Receipt Date: 20130724
  Transmission Date: 20140515
  Serious: Yes (Hospitalization, Other)
  Sender: FDA-Public Use
  Company Number: PE-PFIZER INC-2013210729

PATIENT
  Age: 68 Year
  Sex: Female

DRUGS (2)
  1. XALATAN [Suspect]
     Dosage: UNK
     Route: 047
  2. COSOPT [Concomitant]
     Dosage: UNK
     Route: 047

REACTIONS (5)
  - Glaucoma [Unknown]
  - Cataract [Unknown]
  - Visual acuity reduced [Unknown]
  - Depression [Unknown]
  - Drug ineffective [Unknown]
